FAERS Safety Report 20108944 (Version 2)
Quarter: 2021Q4

REPORT INFORMATION
  Report Type: Spontaneous
  Country: FR (occurrence: FR)
  Receive Date: 20211124
  Receipt Date: 20211214
  Transmission Date: 20220303
  Serious: Yes (Hospitalization)
  Sender: FDA-Public Use
  Company Number: FR-JNJFOC-20210916211

PATIENT
  Age: 16 Year
  Sex: Female
  Weight: 38.8 kg

DRUGS (37)
  1. ACETAMINOPHEN [Suspect]
     Active Substance: ACETAMINOPHEN
     Indication: Product used for unknown indication
     Dosage: 8 GRAM
     Route: 065
  2. FERROUS FUMARATE [Suspect]
     Active Substance: FERROUS FUMARATE
     Indication: Product used for unknown indication
     Dosage: UNK, 25
     Route: 065
  3. IMODIUM [Suspect]
     Active Substance: LOPERAMIDE HYDROCHLORIDE
     Indication: Product used for unknown indication
     Dosage: UNK, (12 IMODIUM)
     Route: 065
  4. PHLOROGLUCINOL [Suspect]
     Active Substance: PHLOROGLUCINOL
     Indication: Product used for unknown indication
     Dosage: UNK, 10
     Route: 065
  5. ANETHOLTRITHION [Suspect]
     Active Substance: ANETHOLTRITHION
     Indication: Product used for unknown indication
     Dosage: UNK, 60
     Route: 065
  6. IBUPROFEN [Suspect]
     Active Substance: IBUPROFEN
     Indication: Product used for unknown indication
     Dosage: UNK, (23 CP)
     Route: 065
  7. MORPHINE SULFATE [Concomitant]
     Active Substance: MORPHINE SULFATE
     Indication: Major depression
     Dosage: 5 MILLIGRAM
     Route: 048
     Dates: start: 20210427, end: 20210430
  8. MORPHINE SULFATE [Concomitant]
     Active Substance: MORPHINE SULFATE
     Dosage: 10 MILLIGRAM, QD
     Route: 048
     Dates: start: 20210427
  9. CYAMEMAZINE [Concomitant]
     Active Substance: CYAMEMAZINE
     Indication: Panic attack
     Dosage: 75 MILLIGRAM, QD
     Route: 048
     Dates: start: 20210525
  10. CYAMEMAZINE [Concomitant]
     Active Substance: CYAMEMAZINE
     Dosage: 60 MILLIGRAM, QD (LIQUID)
     Route: 048
     Dates: start: 20210402, end: 20210404
  11. CHLORPROMAZINE [Concomitant]
     Active Substance: CHLORPROMAZINE
     Indication: Panic attack
     Dosage: 60 MILLIGRAM, QD
     Route: 048
     Dates: start: 20210427
  12. ACETYLCYSTEINE [Concomitant]
     Active Substance: ACETYLCYSTEINE
     Dosage: 11640 MILLIGRAM
     Route: 042
     Dates: start: 20210904, end: 20210905
  13. POLYETHYLENE GLYCOLS [Concomitant]
     Active Substance: POLYETHYLENE GLYCOLS
     Indication: Constipation prophylaxis
     Dosage: 52.48 GRAM, QD
     Route: 048
     Dates: start: 20210427
  14. FLUOXETINE [Concomitant]
     Active Substance: FLUOXETINE HYDROCHLORIDE
     Indication: Major depression
     Dosage: UNK, (20 TABLETS DAILY)
     Route: 048
     Dates: start: 20210402, end: 20210415
  15. SENNOSIDES A AND B [Concomitant]
     Active Substance: SENNOSIDES A AND B
     Indication: Constipation prophylaxis
     Dosage: 2.4 GRAM
     Route: 048
     Dates: start: 20210427
  16. ZOLPIDEM [Concomitant]
     Active Substance: ZOLPIDEM TARTRATE
     Indication: Sleep disorder
     Dosage: 10 MILLIGRAM
     Route: 048
     Dates: start: 20210331
  17. ALPRAZOLAM [Concomitant]
     Active Substance: ALPRAZOLAM
     Indication: Panic attack
     Dosage: 0.25 MILLIGRAM
     Route: 048
     Dates: start: 20210423
  18. PRAZEPAM [Concomitant]
     Active Substance: PRAZEPAM
     Dosage: 10 MILLIGRAM
     Route: 048
     Dates: start: 20210428, end: 20210513
  19. PRAZEPAM [Concomitant]
     Active Substance: PRAZEPAM
     Dosage: 40 MILLIGRAM, QD
     Route: 048
     Dates: start: 20210409, end: 20210427
  20. PRAZEPAM [Concomitant]
     Active Substance: PRAZEPAM
     Dosage: 7.5 MILLIGRAM
     Route: 048
     Dates: start: 20210514, end: 20210519
  21. PRAZEPAM [Concomitant]
     Active Substance: PRAZEPAM
     Dosage: 5 MILLIGRAM
     Route: 048
     Dates: start: 20210520
  22. PRAZEPAM [Concomitant]
     Active Substance: PRAZEPAM
     Dosage: 5 MILLIGRAM
     Route: 048
     Dates: start: 20210520
  23. CYAMEMAZINE [Concomitant]
     Active Substance: CYAMEMAZINE
     Dosage: 30 MILLIGRAM, QD
     Route: 048
     Dates: start: 20210331, end: 20210331
  24. CYAMEMAZINE [Concomitant]
     Active Substance: CYAMEMAZINE
     Dosage: 15 MILLIGRAM
     Route: 048
     Dates: start: 20210401, end: 20210401
  25. CYAMEMAZINE [Concomitant]
     Active Substance: CYAMEMAZINE
     Dosage: 60 MILLIGRAM, QD
     Route: 048
     Dates: start: 20210402, end: 20210404
  26. CYAMEMAZINE [Concomitant]
     Active Substance: CYAMEMAZINE
     Dosage: 45 MILLIGRAM, QD
     Route: 048
     Dates: start: 20210405, end: 20210405
  27. CYAMEMAZINE [Concomitant]
     Active Substance: CYAMEMAZINE
     Dosage: 60 MILLIGRAM, QD
     Route: 048
     Dates: start: 20210406, end: 20210406
  28. CYAMEMAZINE [Concomitant]
     Active Substance: CYAMEMAZINE
     Dosage: 45 MILLIGRAM, QD
     Route: 048
     Dates: start: 20210407, end: 20210427
  29. ANETHOLTRITHION [Concomitant]
     Active Substance: ANETHOLTRITHION
     Indication: Prophylaxis
     Dosage: 75 MILLIGRAM, QD
     Route: 048
     Dates: start: 20210408
  30. TROPATEPINE [Concomitant]
     Active Substance: TROPATEPINE
     Indication: Prophylaxis
     Dosage: 10 MILLIGRAM
     Route: 048
     Dates: start: 20210427
  31. FERROUS FUMARATE [Concomitant]
     Active Substance: FERROUS FUMARATE
     Indication: Anaemia
     Dosage: 66 MILLIGRAM
     Route: 048
     Dates: start: 20210520
  32. FLUOXETINE [Concomitant]
     Active Substance: FLUOXETINE HYDROCHLORIDE
     Indication: Major depression
     Dosage: 40 MILLIGRAM, QD
     Route: 048
     Dates: start: 20210416, end: 20210427
  33. FLUOXETINE [Concomitant]
     Active Substance: FLUOXETINE HYDROCHLORIDE
     Dosage: 60 MILLIGRAM, QD
     Route: 048
     Dates: start: 20210428
  34. DIAZEPAM [Concomitant]
     Active Substance: DIAZEPAM
     Indication: Panic attack
     Dosage: 15 MILLIGRAM
     Route: 048
     Dates: start: 20210403, end: 20210409
  35. HYDROXYZINE [Concomitant]
     Active Substance: HYDROXYZINE HYDROCHLORIDE
     Indication: Anxiety
     Dosage: UNK
  36. HYDROXYZINE [Concomitant]
     Active Substance: HYDROXYZINE HYDROCHLORIDE
     Indication: Panic attack
     Dosage: 75 MILLIGRAM
     Route: 048
     Dates: start: 20210423, end: 20210424
  37. Mitrazac [Concomitant]
     Indication: Panic attack
     Dosage: 15 MILLIGRAM
     Route: 048
     Dates: start: 20210608

REACTIONS (1)
  - Suicide attempt [Recovered/Resolved]

NARRATIVE: CASE EVENT DATE: 20210903
